FAERS Safety Report 20622269 (Version 1)
Quarter: 2022Q1

REPORT INFORMATION
  Report Type: Spontaneous
  Country: US (occurrence: US)
  Receive Date: 20220322
  Receipt Date: 20220322
  Transmission Date: 20220423
  Serious: Yes (Other)
  Sender: FDA-Public Use
  Company Number: US-PFIZER INC-202200396699

PATIENT
  Age: 90 Year
  Sex: Male
  Weight: 58.9 kg

DRUGS (2)
  1. RETACRIT [Suspect]
     Active Substance: EPOETIN ALFA-EPBX
     Indication: Anaemia
     Dosage: 40000 UNITS PER ML, 1ML VIAL, INJECTS 1ML OR 40000 UNITS INTO THE SKIN, ONCE A WEEK
     Route: 058
  2. NIFEREX [IRON POLYSACCHARIDE COMPLEX] [Concomitant]
     Indication: Anaemia
     Dosage: 150MG CAPSULES, 2 CAPSULES BY MOUTH, ONCE A DAY
     Route: 048

REACTIONS (3)
  - Poor quality product administered [Unknown]
  - Product temperature excursion issue [Unknown]
  - Haemoglobin decreased [Unknown]
